FAERS Safety Report 17302647 (Version 2)
Quarter: 2020Q1

REPORT INFORMATION
  Report Type: Spontaneous
  Country: JP (occurrence: JP)
  Receive Date: 20200122
  Receipt Date: 20200218
  Transmission Date: 20200409
  Serious: Yes (Other)
  Sender: FDA-Public Use
  Company Number: JP-PFIZER INC-2020029400

PATIENT
  Age: 8 Decade
  Sex: Female

DRUGS (41)
  1. IRINOTECAN HCL [Suspect]
     Active Substance: IRINOTECAN HYDROCHLORIDE
     Dosage: UNK, CYCLIC
     Dates: start: 201603, end: 201606
  2. IRINOTECAN HCL [Suspect]
     Active Substance: IRINOTECAN HYDROCHLORIDE
     Dosage: UNK, CYCLIC
     Dates: start: 201610, end: 201703
  3. CALCIUM FOLINATE [Suspect]
     Active Substance: LEUCOVORIN CALCIUM
     Dosage: UNK, CYCLIC
     Dates: start: 201502
  4. CALCIUM FOLINATE [Suspect]
     Active Substance: LEUCOVORIN CALCIUM
     Dosage: UNK, CYCLIC
     Dates: start: 201509, end: 201511
  5. CALCIUM FOLINATE [Suspect]
     Active Substance: LEUCOVORIN CALCIUM
     Dosage: UNK, CYCLIC
     Dates: start: 201707
  6. CALCIUM FOLINATE [Suspect]
     Active Substance: LEUCOVORIN CALCIUM
     Dosage: UNK, CYCLIC
     Dates: start: 201801, end: 2018
  7. CALCIUM FOLINATE [Suspect]
     Active Substance: LEUCOVORIN CALCIUM
     Indication: COLON CANCER RECURRENT
     Dosage: 250 MG, (PER BODY) CYCLIC
     Dates: start: 201103
  8. 5-FU [FLUOROURACIL] [Suspect]
     Active Substance: FLUOROURACIL
     Dosage: UNK, CYCLIC
     Dates: start: 201509, end: 201511
  9. 5-FU [FLUOROURACIL] [Suspect]
     Active Substance: FLUOROURACIL
     Dosage: UNK, CYCLIC
     Dates: start: 201610, end: 201703
  10. 5-FU [FLUOROURACIL] [Suspect]
     Active Substance: FLUOROURACIL
     Dosage: UNK, CYCLIC
     Dates: start: 201801, end: 2018
  11. CALCIUM FOLINATE [Suspect]
     Active Substance: LEUCOVORIN CALCIUM
     Dosage: UNK, CYCLIC
     Dates: start: 201809
  12. 5-FU [FLUOROURACIL] [Suspect]
     Active Substance: FLUOROURACIL
     Dosage: UNK, CYCLIC
     Dates: start: 201809
  13. PANITUMUMAB [Suspect]
     Active Substance: PANITUMUMAB
     Dosage: UNK, CYCLIC
     Dates: start: 201509, end: 201511
  14. IRINOTECAN HCL [Suspect]
     Active Substance: IRINOTECAN HYDROCHLORIDE
     Indication: COLON CANCER RECURRENT
     Dosage: 200 MG, (PER BODY) CYCLIC
     Dates: start: 201105
  15. IRINOTECAN HCL [Suspect]
     Active Substance: IRINOTECAN HYDROCHLORIDE
     Dosage: UNK, CYCLIC
     Dates: start: 201707
  16. 5-FU [FLUOROURACIL] [Suspect]
     Active Substance: FLUOROURACIL
     Dosage: UNK, CYCLIC
     Dates: start: 201603, end: 201606
  17. 5-FU [FLUOROURACIL] [Suspect]
     Active Substance: FLUOROURACIL
     Dosage: UNK, CYCLIC
     Dates: start: 201711
  18. PANITUMUMAB [Suspect]
     Active Substance: PANITUMUMAB
     Indication: COLON CANCER RECURRENT
     Dosage: 300 MG, (PER BODY) CYCLIC
     Dates: start: 201105
  19. PANITUMUMAB [Suspect]
     Active Substance: PANITUMUMAB
     Dosage: UNK, CYCLIC
     Dates: start: 201603, end: 201606
  20. PANITUMUMAB [Suspect]
     Active Substance: PANITUMUMAB
     Dosage: UNK, CYCLIC
     Dates: start: 201707, end: 201711
  21. CALCIUM FOLINATE [Suspect]
     Active Substance: LEUCOVORIN CALCIUM
     Dosage: UNK, CYCLIC
     Dates: start: 201603, end: 201606
  22. 5-FU [FLUOROURACIL] [Suspect]
     Active Substance: FLUOROURACIL
     Indication: COLON CANCER RECURRENT
     Dosage: 2600 MG, (PER BODY) CYCLIC
     Dates: start: 201105
  23. PANITUMUMAB [Suspect]
     Active Substance: PANITUMUMAB
     Dosage: 300 MG, (PER BODY) CYCLIC
     Dates: start: 201310
  24. PANITUMUMAB [Suspect]
     Active Substance: PANITUMUMAB
     Dosage: UNK, CYCLIC
     Dates: start: 201502
  25. IRINOTECAN HCL [Suspect]
     Active Substance: IRINOTECAN HYDROCHLORIDE
     Dosage: UNK, CYCLIC
     Dates: start: 201801, end: 2018
  26. 5-FU [FLUOROURACIL] [Suspect]
     Active Substance: FLUOROURACIL
     Dosage: 2600 MG, (PER BODY) CYCLIC
     Dates: start: 201310
  27. IRINOTECAN HCL [Suspect]
     Active Substance: IRINOTECAN HYDROCHLORIDE
     Dosage: 200 MG, (PER BODY) CYCLIC
     Dates: start: 201310
  28. IRINOTECAN HCL [Suspect]
     Active Substance: IRINOTECAN HYDROCHLORIDE
     Dosage: UNK, CYCLIC
     Dates: start: 201502
  29. IRINOTECAN HCL [Suspect]
     Active Substance: IRINOTECAN HYDROCHLORIDE
     Dosage: UNK, CYCLIC
     Dates: start: 201711
  30. CALCIUM FOLINATE [Suspect]
     Active Substance: LEUCOVORIN CALCIUM
     Dosage: 250 MG, (PER BODY) CYCLIC
     Dates: start: 201310
  31. CALCIUM FOLINATE [Suspect]
     Active Substance: LEUCOVORIN CALCIUM
     Dosage: UNK, CYCLIC
     Dates: start: 201711
  32. 5-FU [FLUOROURACIL] [Suspect]
     Active Substance: FLUOROURACIL
     Dosage: UNK, CYCLIC
     Dates: start: 201502
  33. PANITUMUMAB [Suspect]
     Active Substance: PANITUMUMAB
     Dosage: UNK, CYCLIC
     Dates: start: 201801, end: 2018
  34. BAYASPIRIN [Concomitant]
     Active Substance: ASPIRIN
     Dosage: UNK
  35. IRINOTECAN HCL [Suspect]
     Active Substance: IRINOTECAN HYDROCHLORIDE
     Dosage: UNK, CYCLIC
     Dates: start: 201509, end: 201511
  36. IRINOTECAN HCL [Suspect]
     Active Substance: IRINOTECAN HYDROCHLORIDE
     Dosage: UNK, CYCLIC
     Dates: start: 201809
  37. CALCIUM FOLINATE [Suspect]
     Active Substance: LEUCOVORIN CALCIUM
     Dosage: UNK, CYCLIC
     Dates: start: 201610, end: 201703
  38. 5-FU [FLUOROURACIL] [Suspect]
     Active Substance: FLUOROURACIL
     Dosage: UNK, CYCLIC
     Dates: start: 201707
  39. PANITUMUMAB [Suspect]
     Active Substance: PANITUMUMAB
     Dosage: UNK, CYCLIC
     Dates: start: 201610, end: 201703
  40. PANITUMUMAB [Suspect]
     Active Substance: PANITUMUMAB
     Dosage: UNK, CYCLIC
     Dates: start: 201809
  41. AFLIBERCEPT [Suspect]
     Active Substance: AFLIBERCEPT
     Indication: COLON CANCER RECURRENT
     Dosage: UNK UNK, CYCLIC
     Dates: start: 201711, end: 201801

REACTIONS (5)
  - Acute respiratory failure [Recovered/Resolved]
  - Dizziness [Recovering/Resolving]
  - Deep vein thrombosis [Recovered/Resolved]
  - Cutaneous symptom [Recovering/Resolving]
  - Pulmonary embolism [Recovered/Resolved]

NARRATIVE: CASE EVENT DATE: 201202
